FAERS Safety Report 20952276 (Version 1)
Quarter: 2022Q2

REPORT INFORMATION
  Report Type: Spontaneous
  Country: US (occurrence: None)
  Receive Date: 20220613
  Receipt Date: 20220613
  Transmission Date: 20220721
  Serious: Yes (Hospitalization)
  Sender: FDA-Public Use
  Company Number: None

PATIENT
  Age: 44 Year
  Sex: Male

DRUGS (1)
  1. HUMIRA [Suspect]
     Active Substance: ADALIMUMAB
     Dosage: OTHER FREQUENCY : OTHER;?
     Route: 058
     Dates: start: 202204

REACTIONS (6)
  - Feeling abnormal [None]
  - Neuropathy peripheral [None]
  - Alopecia [None]
  - Fatigue [None]
  - Panic attack [None]
  - Dermatitis contact [None]

NARRATIVE: CASE EVENT DATE: 20220606
